FAERS Safety Report 5781044-4 (Version None)
Quarter: 2008Q2

REPORT INFORMATION
  Report Type: 
  Country: None (occurrence: None)
  Receive Date: 20080620
  Receipt Date: 20080610
  Transmission Date: 20081010
  Serious: Yes (Other)
  Sender: FDA-Public Use
  Company Number: DE-PFIZER INC-2008049280

PATIENT
  Age: 46 Year
  Sex: Female

DRUGS (2)
  1. RELPAX [Suspect]
     Indication: MIGRAINE
     Route: 048
  2. LYRICA [Suspect]
     Indication: MIGRAINE
     Route: 048

REACTIONS (1)
  - THROAT TIGHTNESS [None]
